FAERS Safety Report 20163494 (Version 2)
Quarter: 2025Q2

REPORT INFORMATION
  Report Type: Spontaneous
  Country: PT (occurrence: PT)
  Receive Date: 20211209
  Receipt Date: 20250430
  Transmission Date: 20250717
  Serious: Yes (Other)
  Sender: AUROBINDO
  Company Number: PT-SAMIL-GLO2021PT009187

PATIENT
  Age: 68 Year
  Sex: Female

DRUGS (4)
  1. BORTEZOMIB [Suspect]
     Active Substance: BORTEZOMIB
     Indication: Plasma cell myeloma
     Route: 065
  2. MELPHALAN [Suspect]
     Active Substance: MELPHALAN
     Indication: Bone marrow conditioning regimen
     Route: 065
  3. DEXAMETHASONE [Suspect]
     Active Substance: DEXAMETHASONE
     Indication: Plasma cell myeloma
     Route: 065
  4. LENALIDOMIDE [Suspect]
     Active Substance: LENALIDOMIDE
     Indication: Plasma cell myeloma
     Route: 065

REACTIONS (6)
  - Hypoxia [Recovering/Resolving]
  - Platelet count decreased [Recovering/Resolving]
  - Purpura [Recovering/Resolving]
  - Off label use [Unknown]
  - Dyspnoea [Recovering/Resolving]
  - Pyrexia [Recovering/Resolving]
